FAERS Safety Report 18992058 (Version 2)
Quarter: 2021Q1

REPORT INFORMATION
  Report Type: Spontaneous
  Country: FR (occurrence: FR)
  Receive Date: 20210310
  Receipt Date: 20210331
  Transmission Date: 20210420
  Serious: Yes (Hospitalization)
  Sender: FDA-Public Use
  Company Number: FR-PFIZER INC-2021232160

PATIENT
  Age: 85 Year
  Sex: Female
  Weight: 43 kg

DRUGS (3)
  1. RAMIPRIL. [Suspect]
     Active Substance: RAMIPRIL
     Indication: HYPERTENSION
     Dosage: 1.25 MG, 1X/DAY
     Route: 048
     Dates: end: 20200609
  2. LASILIX [FUROSEMIDE] [Suspect]
     Active Substance: FUROSEMIDE
     Indication: CARDIAC FAILURE
     Dosage: 2 DF, 1X/DAY
     Route: 048
     Dates: end: 20200609
  3. SPIRONOLACTONE. [Suspect]
     Active Substance: SPIRONOLACTONE
     Indication: CARDIAC FAILURE
     Dosage: 25 MG, 1X/DAY
     Route: 048
     Dates: end: 20200609

REACTIONS (2)
  - Acute kidney injury [Recovered/Resolved]
  - Condition aggravated [Recovered/Resolved]

NARRATIVE: CASE EVENT DATE: 20200608
